FAERS Safety Report 4547093-9 (Version None)
Quarter: 2005Q1

REPORT INFORMATION
  Report Type: 
  Country: None (occurrence: None)
  Receive Date: 20050107
  Receipt Date: 20041228
  Transmission Date: 20050727
  Serious: Yes (Hospitalization)
  Sender: FDA-Public Use
  Company Number: US-JNJFOC-20041201210

PATIENT
  Age: 6 Year
  Sex: Female

DRUGS (2)
  1. CHILDREN'S MOTRIN [Suspect]
     Route: 049
  2. CHILDREN'S MOTRIN [Suspect]
     Dosage: 3 DOSES TOTAL
     Route: 049

REACTIONS (3)
  - BLINDNESS [None]
  - PHOTOSENSITIVITY REACTION [None]
  - STEVENS-JOHNSON SYNDROME [None]
